FAERS Safety Report 10524658 (Version 2)
Quarter: 2014Q4

REPORT INFORMATION
  Report Type: Spontaneous
  Country: US (occurrence: US)
  Receive Date: 20141017
  Receipt Date: 20141024
  Transmission Date: 20150528
  Serious: Yes (Other)
  Sender: FDA-Public Use
  Company Number: CHPA2014US014010

PATIENT
  Age: 52 Year
  Sex: Female

DRUGS (2)
  1. VOLTAREN [Suspect]
     Active Substance: DICLOFENAC SODIUM
     Indication: ARTHRALGIA
     Dosage: 4 G, TID
     Route: 061
     Dates: start: 2014, end: 20141014
  2. VOLTAREN [Suspect]
     Active Substance: DICLOFENAC SODIUM
     Indication: OFF LABEL USE

REACTIONS (2)
  - Inappropriate schedule of drug administration [Unknown]
  - Menometrorrhagia [Recovering/Resolving]

NARRATIVE: CASE EVENT DATE: 2014
